FAERS Safety Report 7591478-3 (Version None)
Quarter: 2011Q2

REPORT INFORMATION
  Report Type: 
  Country: None (occurrence: None)
  Receive Date: 20110627
  Receipt Date: 20110613
  Transmission Date: 20111010
  Serious: Yes (Hospitalization, Other)
  Sender: FDA-Public Use
  Company Number: 2011MA006764

PATIENT
  Age: 37 Year
  Sex: Male

DRUGS (4)
  1. GABAPENTIN [Suspect]
     Indication: DEPENDENCE
     Dosage: 27 GM; OD; PO
     Route: 048
  2. BENZODIAZEPINES [Suspect]
  3. ALCOHOL (ETHANOL) [Suspect]
  4. TOBACCO (NO PREF. NAME) [Suspect]

REACTIONS (6)
  - DRUG LEVEL INCREASED [None]
  - SINUS BRADYCARDIA [None]
  - SLUGGISHNESS [None]
  - DRUG DEPENDENCE [None]
  - SEDATION [None]
  - LETHARGY [None]
